FAERS Safety Report 21756182 (Version 2)
Quarter: 2023Q1

REPORT INFORMATION
  Report Type: Report from Study
  Country: US (occurrence: US)
  Receive Date: 20221220
  Receipt Date: 20230130
  Transmission Date: 20230417
  Serious: Yes (Hospitalization)
  Sender: FDA-Public Use
  Company Number: US-REGENERON PHARMACEUTICALS, INC.-2022-158575

PATIENT
  Age: 71 Year
  Sex: Male

DRUGS (7)
  1. CEMIPLIMAB [Suspect]
     Active Substance: CEMIPLIMAB
     Indication: Prostate cancer metastatic
     Dosage: 350 MG, Q3W
     Route: 042
     Dates: start: 20220617
  2. CEMIPLIMAB [Suspect]
     Active Substance: CEMIPLIMAB
     Dosage: 350 MG, Q3W
     Route: 042
     Dates: start: 20221212
  3. DOCETAXEL [Suspect]
     Active Substance: DOCETAXEL
     Indication: Prostate cancer metastatic
     Dosage: 75 MG/M2 ON DAY 1 EVERY 21 DAYS OVER ONE HOUR FOR UP TO 6 CYCLES
     Route: 042
     Dates: start: 20220729
  4. DOCETAXEL [Suspect]
     Active Substance: DOCETAXEL
     Dosage: 75 MG/M2 ON DAY 1 EVERY 21 DAYS OVER ONE HOUR FOR UP TO 6 CYCLES
     Route: 042
     Dates: start: 20221111
  5. LEUPROLIDE ACETATE [Suspect]
     Active Substance: LEUPROLIDE ACETATE
     Indication: Prostate cancer metastatic
     Dosage: 22.5 MG, EVERY THREE MONTHS
     Route: 058
     Dates: start: 20220617
  6. LEUPROLIDE ACETATE [Suspect]
     Active Substance: LEUPROLIDE ACETATE
     Dosage: 22.5 MG, EVERY THREE MONTHS
     Route: 058
     Dates: start: 20221212
  7. DEGARELIX [Suspect]
     Active Substance: DEGARELIX
     Indication: Prostate cancer metastatic
     Dosage: 240 MG, SINGLE
     Route: 058
     Dates: start: 20220520, end: 20220520

REACTIONS (1)
  - Pneumonitis [Recovered/Resolved with Sequelae]

NARRATIVE: CASE EVENT DATE: 20221211
